FAERS Safety Report 4443516-4 (Version None)
Quarter: 2004Q3

REPORT INFORMATION
  Report Type: 
  Country: None (occurrence: None)
  Receive Date: 20040901
  Receipt Date: 20040817
  Transmission Date: 20050211
  Serious: Yes (Hospitalization)
  Sender: FDA-Public Use
  Company Number: 04P-163-0270829-00

PATIENT
  Age: 76 Year
  Sex: Female
  Weight: 64.8644 kg

DRUGS (6)
  1. HUMIRA [Suspect]
     Indication: RHEUMATOID ARTHRITIS
     Dosage: 40 MG, 1 IN 1 WK, SUBCUTANEOUS
     Route: 058
     Dates: start: 20030801
  2. PRINZIDE [Concomitant]
  3. BUCINDOLOL HYDROCHLORIDE [Concomitant]
  4. CALCIUM [Concomitant]
  5. DIPHENHYDRAMINE HCL [Concomitant]
  6. PARACETAMOL [Concomitant]

REACTIONS (3)
  - BLOOD PRESSURE INCREASED [None]
  - CEREBROVASCULAR ACCIDENT [None]
  - TRANSIENT ISCHAEMIC ATTACK [None]
